FAERS Safety Report 19734702 (Version 2)
Quarter: 2021Q4

REPORT INFORMATION
  Report Type: Other
  Country: US (occurrence: None)
  Receive Date: 20210823
  Receipt Date: 20211216
  Transmission Date: 20220303
  Serious: No
  Sender: FDA-Public Use
  Company Number: US-ROCHE-2889810

PATIENT
  Sex: Female
  Weight: 64.014 kg

DRUGS (1)
  1. OCREVUS [Suspect]
     Active Substance: OCRELIZUMAB
     Indication: Relapsing-remitting multiple sclerosis
     Dosage: LAST DATE OF TREATMENT: 15/JAN/2020, ANTICIPATED DATE OF TREATMENT: 08/JUL/2020
     Route: 042
     Dates: start: 2016, end: 20200824

REACTIONS (4)
  - Urinary tract infection [Not Recovered/Not Resolved]
  - Maternal exposure before pregnancy [Unknown]
  - Fungal infection [Unknown]
  - Bacterial vaginosis [Unknown]
